FAERS Safety Report 9932649 (Version 1)
Quarter: 2014Q1

REPORT INFORMATION
  Report Type: Spontaneous
  Country: US (occurrence: US)
  Receive Date: 20140228
  Receipt Date: 20140228
  Transmission Date: 20141002
  Serious: No
  Sender: FDA-Public Use
  Company Number: US-GLAXOSMITHKLINE-A1018164A

PATIENT
  Sex: 0

DRUGS (6)
  1. IMITREX [Suspect]
     Indication: MIGRAINE
     Route: 065
  2. TOPOMAX [Suspect]
     Indication: MIGRAINE
     Route: 065
  3. COPAXONE [Suspect]
     Indication: MULTIPLE SCLEROSIS
     Route: 065
     Dates: start: 201302
  4. PERCOCET [Concomitant]
  5. ALEVE [Concomitant]
  6. ZOFRAN [Concomitant]

REACTIONS (1)
  - Drug ineffective [Unknown]
